FAERS Safety Report 13929758 (Version 2)
Quarter: 2017Q3

REPORT INFORMATION
  Report Type: Spontaneous
  Country: FR (occurrence: FR)
  Receive Date: 20170901
  Receipt Date: 20170906
  Transmission Date: 20171127
  Serious: Yes (Death, Hospitalization, Other)
  Sender: FDA-Public Use
  Company Number: FR-TEVA-800585ROM

PATIENT
  Age: 61 Year
  Sex: Male
  Weight: 60 kg

DRUGS (4)
  1. CYTARABINE SANDOZ 100 MG/ML [Suspect]
     Active Substance: CYTARABINE
     Indication: LYMPHOMA
     Dosage: 660 MILLIGRAM DAILY;
     Route: 041
     Dates: start: 20160415, end: 20160418
  2. ALKERAN [Suspect]
     Active Substance: MELPHALAN
     Indication: LYMPHOMA
     Dosage: 230 MILLIGRAM DAILY;
     Route: 041
     Dates: start: 20160419, end: 20160419
  3. LEVACT 2,5 MG/ML [Suspect]
     Active Substance: BENDAMUSTINE HYDROCHLORIDE
     Indication: LYMPHOMA
     Dosage: 330 MILLIGRAM DAILY;
     Route: 041
     Dates: start: 20160413, end: 20160414
  4. ETOPOSIDE TEVA 20 MG/ML [Suspect]
     Active Substance: ETOPOSIDE
     Indication: LYMPHOMA
     Dosage: 330 MILLIGRAM DAILY;
     Route: 041
     Dates: start: 20160415, end: 20160418

REACTIONS (10)
  - Mucosal inflammation [Not Recovered/Not Resolved]
  - Multiple organ dysfunction syndrome [Unknown]
  - Acute respiratory distress syndrome [Unknown]
  - Altered state of consciousness [Unknown]
  - Bone marrow failure [Fatal]
  - Systemic candida [Unknown]
  - Acute kidney injury [Recovered/Resolved]
  - Septic shock [Unknown]
  - Febrile neutropenia [Unknown]
  - Off label use [Unknown]

NARRATIVE: CASE EVENT DATE: 20160413
